FAERS Safety Report 21753176 (Version 2)
Quarter: 2023Q1

REPORT INFORMATION
  Report Type: Spontaneous
  Country: FR (occurrence: FR)
  Receive Date: 20221220
  Receipt Date: 20230206
  Transmission Date: 20230418
  Serious: Yes (Hospitalization)
  Sender: FDA-Public Use
  Company Number: FR-AFSSAPS-RE20221555

PATIENT
  Age: 3 Year
  Sex: Female
  Weight: 14 kg

DRUGS (5)
  1. AMOXICILLIN [Suspect]
     Active Substance: AMOXICILLIN
     Indication: Accidental exposure to product by child
     Dosage: 1 GRAM (TOTAL)
     Route: 048
     Dates: start: 20210304, end: 20210304
  2. IMOVANE [Suspect]
     Active Substance: ZOPICLONE
     Indication: Accidental exposure to product by child
     Dosage: 3.75 MILLIGRAM (TOTAL)
     Route: 048
     Dates: start: 20210304, end: 20210304
  3. ACETAMINOPHEN\BELLADONNA LEAF\CAFFEINE\OPIUM [Suspect]
     Active Substance: ACETAMINOPHEN\BELLADONNA LEAF\CAFFEINE\OPIUM
     Indication: Accidental exposure to product by child
     Dosage: 1 DOSAGE FORM (TOTAL)
     Route: 048
     Dates: start: 20210304, end: 20210304
  4. PRAZEPAM [Suspect]
     Active Substance: PRAZEPAM
     Indication: Accidental exposure to product by child
     Dosage: UNK, ONCE A DAY
     Route: 048
     Dates: start: 20210304, end: 20210304
  5. PRAZEPAM [Suspect]
     Active Substance: PRAZEPAM
     Dosage: 5 MILLIGRAM (1 TOTAL)
     Route: 048
     Dates: start: 20210409, end: 20210409

REACTIONS (5)
  - Accidental exposure to product by child [Recovered/Resolved]
  - Accidental overdose [Recovered/Resolved]
  - Gait disturbance [Recovered/Resolved]
  - Hypotonia [Recovered/Resolved]
  - Somnolence [Recovered/Resolved]

NARRATIVE: CASE EVENT DATE: 20210304
